FAERS Safety Report 10127028 (Version 1)
Quarter: 2014Q2

REPORT INFORMATION
  Report Type: Spontaneous
  Country: GB (occurrence: GB)
  Receive Date: 20140428
  Receipt Date: 20140428
  Transmission Date: 20141212
  Serious: Yes (Other)
  Sender: FDA-Public Use
  Company Number: GB-ROCHE-1390503

PATIENT
  Sex: Female

DRUGS (5)
  1. MABTHERA [Suspect]
     Indication: DIFFUSE LARGE B-CELL LYMPHOMA
     Route: 065
  2. CYCLOPHOSPHAMIDE [Concomitant]
  3. DOXORUBICIN [Concomitant]
  4. VINCRISTINE [Concomitant]
  5. PREDNISONE [Concomitant]

REACTIONS (1)
  - Retinal detachment [Unknown]
